FAERS Safety Report 8790912 (Version 2)
Quarter: 2014Q1

REPORT INFORMATION
  Report Type: Spontaneous
  Country: JP (occurrence: None)
  Receive Date: 20120907
  Receipt Date: 20140221
  Transmission Date: 20141002
  Serious: Yes (Death)
  Sender: FDA-Public Use
  Company Number: ADR-2012-01637

PATIENT
  Sex: Male

DRUGS (1)
  1. GABALON [Suspect]
     Indication: CEREBELLAR INFARCTION

REACTIONS (2)
  - Lung neoplasm malignant [None]
  - Malignant neoplasm progression [None]
